FAERS Safety Report 13642489 (Version 1)
Quarter: 2017Q2

REPORT INFORMATION
  Report Type: Spontaneous
  Country: US (occurrence: US)
  Receive Date: 20170612
  Receipt Date: 20170612
  Transmission Date: 20170830
  Serious: No
  Sender: FDA-Public Use
  Company Number: US-GLAXOSMITHKLINE-US2017086348

PATIENT
  Sex: Male

DRUGS (1)
  1. POTIGA [Suspect]
     Active Substance: EZOGABINE
     Indication: AMYOTROPHIC LATERAL SCLEROSIS
     Dosage: UNK

REACTIONS (3)
  - Product use in unapproved indication [None]
  - Therapeutic response unexpected [Unknown]
  - Product used for unknown indication [Unknown]
